FAERS Safety Report 7791835-6 (Version None)
Quarter: 2011Q4

REPORT INFORMATION
  Report Type: 
  Country: None (occurrence: None)
  Receive Date: 20111003
  Receipt Date: 20110927
  Transmission Date: 20120403
  Serious: No
  Sender: FDA-Public Use
  Company Number: US-PFIZER INC-2011192174

PATIENT
  Sex: Female

DRUGS (4)
  1. CYMBALTA [Suspect]
     Dosage: UNK
  2. OXYCODONE HYDROCHLORIDE [Suspect]
     Dosage: UNK
  3. LYRICA [Suspect]
     Dosage: UNK
  4. NEURONTIN [Suspect]
     Dosage: UNK
     Dates: end: 20110401

REACTIONS (2)
  - FATIGUE [None]
  - PAIN [None]
